FAERS Safety Report 6207958-9 (Version None)
Quarter: 2009Q2

REPORT INFORMATION
  Report Type: 
  Country: None (occurrence: None)
  Receive Date: 20090529
  Receipt Date: 20090209
  Transmission Date: 20091009
  Serious: No
  Sender: FDA-Public Use
  Company Number: A0759319A

PATIENT
  Age: 33 Year
  Sex: Female

DRUGS (3)
  1. VENTOLIN [Suspect]
     Indication: ASTHMA
     Dosage: 2PUFF TWICE PER DAY
     Route: 055
     Dates: start: 20070101
  2. ADVAIR HFA [Concomitant]
  3. ACIPHEX [Concomitant]

REACTIONS (3)
  - FEELING JITTERY [None]
  - HEART RATE INCREASED [None]
  - PRODUCT QUALITY ISSUE [None]
